FAERS Safety Report 10550287 (Version 2)
Quarter: 2014Q4

REPORT INFORMATION
  Report Type: Spontaneous
  Country: GB (occurrence: GB)
  Receive Date: 20141029
  Receipt Date: 20141104
  Transmission Date: 20150529
  Serious: Yes (Other)
  Sender: FDA-Public Use
  Company Number: GB-RANBAXY-2014RR-87069

PATIENT
  Sex: Male

DRUGS (1)
  1. GABAPENTIN. [Suspect]
     Active Substance: GABAPENTIN
     Indication: PRODUCT USED FOR UNKNOWN INDICATION
     Dosage: 900 MG, 3X/DAY
     Route: 065

REACTIONS (2)
  - Psychotic disorder [Unknown]
  - Nervous system disorder [Unknown]

NARRATIVE: CASE EVENT DATE: 201311
